FAERS Safety Report 5596670-5 (Version None)
Quarter: 2008Q1

REPORT INFORMATION
  Report Type: 
  Country: None (occurrence: None)
  Receive Date: 20080118
  Receipt Date: 20080109
  Transmission Date: 20080703
  Serious: Yes (Death)
  Sender: FDA-Public Use
  Company Number: US-PFIZER INC-2008003078

PATIENT
  Age: 20 Year
  Sex: Male

DRUGS (5)
  1. ATORVASTATIN [Suspect]
  2. DRUG, UNSPECIFIED [Suspect]
  3. MOEXIPRIL HCL [Suspect]
  4. ASPIRIN AND DIPYRIDAMOLE [Suspect]
  5. ZOLPIDEM [Suspect]

REACTIONS (3)
  - CARDIAC ARREST [None]
  - DEATH [None]
  - RESPIRATORY ARREST [None]
